FAERS Safety Report 22325626 (Version 1)
Quarter: 2023Q2

REPORT INFORMATION
  Report Type: Spontaneous
  Country: US (occurrence: US)
  Receive Date: 20230516
  Receipt Date: 20230516
  Transmission Date: 20230722
  Serious: Yes (Disabling)
  Sender: FDA-Public Use
  Company Number: US-BRACCO-2023US02281

PATIENT
  Sex: Female

DRUGS (3)
  1. CHOLETEC [Suspect]
     Active Substance: TECHNETIUM TC-99M MEBROFENIN
     Indication: Hepatobiliary scan
     Dosage: UNK, SINGLE
     Dates: start: 20120403, end: 20120403
  2. GABAPENTIN [Concomitant]
     Active Substance: GABAPENTIN
  3. NORTRIPTYLINE [Concomitant]
     Active Substance: NORTRIPTYLINE

REACTIONS (6)
  - Hand deformity [Unknown]
  - Limb discomfort [Unknown]
  - Sleep disorder [Unknown]
  - Swelling [Unknown]
  - Radiculitis brachial [Unknown]
  - Abdominal pain upper [Unknown]

NARRATIVE: CASE EVENT DATE: 20120403
